FAERS Safety Report 9383892 (Version 1)
Quarter: 2013Q3

REPORT INFORMATION
  Report Type: Spontaneous
  Country: US (occurrence: US)
  Receive Date: 20130705
  Receipt Date: 20130705
  Transmission Date: 20140515
  Serious: No
  Sender: FDA-Public Use
  Company Number: US-009507513-1307USA001039

PATIENT
  Age: 42 Year
  Sex: Female

DRUGS (3)
  1. SAPHRIS [Suspect]
     Indication: SCHIZOPHRENIA
     Route: 060
  2. SAPHRIS [Suspect]
     Indication: BIPOLAR DISORDER
  3. LEXAPRO [Concomitant]

REACTIONS (2)
  - Abdominal discomfort [Recovering/Resolving]
  - Adverse event [Recovering/Resolving]
